FAERS Safety Report 24670674 (Version 1)
Quarter: 2024Q4

REPORT INFORMATION
  Report Type: Spontaneous
  Country: US (occurrence: US)
  Receive Date: 20241127
  Receipt Date: 20241127
  Transmission Date: 20250115
  Serious: No
  Sender: INCYTE
  Company Number: US-INCYTE CORPORATION-2024IN012461

PATIENT

DRUGS (1)
  1. JAKAFI [Suspect]
     Active Substance: RUXOLITINIB
     Indication: Polycythaemia vera
     Dosage: 5 MILLIGRAM, BID (TAKE AT ABOUT THE SAME TIME EACH DAY, WITH OR WITHOUT FOOD)
     Route: 048
     Dates: start: 202408

REACTIONS (1)
  - Pain [Unknown]
